FAERS Safety Report 5501380-6 (Version None)
Quarter: 2007Q4

REPORT INFORMATION
  Report Type: 
  Country: None (occurrence: None)
  Receive Date: 20071018
  Receipt Date: 20070109
  Transmission Date: 20080405
  Serious: Yes (Other)
  Sender: FDA-Public Use
  Company Number: 2007003714

PATIENT
  Sex: Female

DRUGS (7)
  1. NEURONTIN [Suspect]
     Dates: start: 19970314, end: 20040928
  2. AMITRIPTYLINE HCL [Concomitant]
  3. NAPROSYN [Concomitant]
  4. MOTRIN [Concomitant]
  5. NEXIUM [Concomitant]
  6. ZITHROMAX [Concomitant]
  7. BACTRIM [Concomitant]

REACTIONS (9)
  - ANXIETY [None]
  - ATROPHY [None]
  - BALANCE DISORDER [None]
  - DEPRESSION [None]
  - DIZZINESS [None]
  - FATIGUE [None]
  - HYPOAESTHESIA [None]
  - PAIN [None]
  - SUICIDE ATTEMPT [None]
